FAERS Safety Report 5461047-X (Version None)
Quarter: 2007Q3

REPORT INFORMATION
  Report Type: 
  Country: None (occurrence: None)
  Receive Date: 20070820
  Receipt Date: 20061212
  Transmission Date: 20080115
  Serious: Yes (Other)
  Sender: FDA-Public Use
  Company Number: 2006152054

PATIENT
  Age: 49 Year
  Sex: Female
  Weight: 86.2 kg

DRUGS (1)
  1. ROGAINE [Suspect]
     Indication: ALOPECIA
     Dosage: 1.0 ML IN THE AM 3ML BEFORE BEDTIME (2 IN 1 D) TOPICAL
     Route: 061
     Dates: start: 20061210, end: 20061211

REACTIONS (3)
  - CHEST PAIN [None]
  - DIZZINESS [None]
  - HEART RATE INCREASED [None]
